FAERS Safety Report 5218484-8 (Version None)
Quarter: 2007Q1

REPORT INFORMATION
  Report Type: 
  Country: None (occurrence: None)
  Receive Date: 20061121
  Receipt Date: 20060926
  Transmission Date: 20070707
  Serious: No
  Sender: FDA-Public Use
  Company Number: TPA2006A01670

PATIENT
  Age: 28 Year
  Sex: Male

DRUGS (2)
  1. ROZEREM [Suspect]
     Dosage: 8 MG, QHS, PER ORAL
     Route: 048
     Dates: start: 20060922, end: 20060923
  2. ROZEREM [Suspect]
     Dosage: 8 MG, QHS, PER ORAL
     Route: 048
     Dates: start: 20060924, end: 20060925

REACTIONS (1)
  - MIGRAINE WITH AURA [None]
